FAERS Safety Report 9604506 (Version 3)
Quarter: 2013Q4

REPORT INFORMATION
  Report Type: Report from Study
  Country: KR (occurrence: KR)
  Receive Date: 20131008
  Receipt Date: 20131224
  Transmission Date: 20140711
  Serious: Yes (Hospitalization)
  Sender: FDA-Public Use
  Company Number: KR-ASTELLAS-2013JP010288

PATIENT
  Age: 58 Year
  Sex: Male

DRUGS (9)
  1. MICAFUNGIN INJECTION [Suspect]
     Indication: INFECTION PROPHYLAXIS
     Dosage: 100 MG, UNKNOWN/D
     Route: 042
     Dates: start: 20130703, end: 20130723
  2. ASPIRIN [Concomitant]
     Dosage: UNK
     Route: 048
     Dates: start: 20130707
  3. DIOMAGNITE [Concomitant]
     Dosage: UNK
     Route: 065
     Dates: start: 20130705
  4. MYCOPHENOLATE [Concomitant]
     Dosage: UNK
     Route: 065
     Dates: start: 20130703
  5. METHYLPREDNISOLONE [Concomitant]
     Dosage: UNK
     Route: 065
     Dates: start: 20130710
  6. NYSTATIN [Concomitant]
     Dosage: UNK
     Route: 065
     Dates: start: 20130703
  7. PANTOPRAZOLE [Concomitant]
     Dosage: UNK
     Route: 065
     Dates: start: 20130705
  8. PROGRAF [Concomitant]
     Dosage: UNK
     Route: 065
     Dates: start: 20130706
  9. UDCA [Concomitant]
     Dosage: UNK
     Route: 065
     Dates: start: 20130708

REACTIONS (1)
  - Ascites [Recovered/Resolved]
